FAERS Safety Report 21044300 (Version 1)
Quarter: 2022Q3

REPORT INFORMATION
  Report Type: Spontaneous
  Country: US (occurrence: US)
  Receive Date: 20220705
  Receipt Date: 20220705
  Transmission Date: 20221027
  Serious: No
  Sender: FDA-Public Use
  Company Number: US-PADAGIS-21US005926

PATIENT

DRUGS (3)
  1. BISACODYL [Suspect]
     Active Substance: BISACODYL
     Indication: Constipation
     Dosage: 1 SUPPOSITORY, ONCE
     Route: 054
     Dates: start: 20210430, end: 20210430
  2. UNSPECIFIED INGREDIENT [Concomitant]
     Active Substance: UNSPECIFIED INGREDIENT
     Indication: Hypertension
     Dosage: UNKNOWN
     Route: 065
  3. COLACE PRN [Concomitant]
     Indication: Faeces hard
     Dosage: UNK, PRN
     Route: 065

REACTIONS (2)
  - Abdominal pain upper [Recovered/Resolved]
  - Drug ineffective [Unknown]

NARRATIVE: CASE EVENT DATE: 20210430
